FAERS Safety Report 22030739 (Version 1)
Quarter: 2023Q1

REPORT INFORMATION
  Report Type: Spontaneous
  Country: SE (occurrence: SE)
  Receive Date: 20230223
  Receipt Date: 20230223
  Transmission Date: 20230418
  Serious: Yes (Other)
  Sender: FDA-Public Use
  Company Number: SE-AMERICAN REGENT INC-2023000462

PATIENT
  Age: 29 Year
  Sex: Female
  Weight: 80 kg

DRUGS (1)
  1. FERINJECT [Suspect]
     Active Substance: FERRIC CARBOXYMALTOSE
     Indication: Iron deficiency
     Dosage: 1000 MILLIGRAM, 1 IN 1 TOTAL
     Route: 042
     Dates: start: 20220706, end: 20220706

REACTIONS (3)
  - Maternal exposure during pregnancy [Unknown]
  - Asthma [Recovered/Resolved]
  - Anaphylactic reaction [Recovered/Resolved]

NARRATIVE: CASE EVENT DATE: 20220706
